FAERS Safety Report 18161453 (Version 6)
Quarter: 2020Q4

REPORT INFORMATION
  Report Type: Report from Study
  Country: BR (occurrence: BR)
  Receive Date: 20200817
  Receipt Date: 20201124
  Transmission Date: 20210113
  Serious: Yes (Other)
  Sender: FDA-Public Use
  Company Number: BR-EXELIXIS-XL18420032029

PATIENT
  Age: 63 Year
  Sex: Female
  Weight: 66.25 kg

DRUGS (9)
  1. XL184 [Suspect]
     Active Substance: CABOZANTINIB
     Indication: HEPATOCELLULAR CARCINOMA
     Dosage: 40 MG, QD
     Route: 048
     Dates: start: 20200701
  2. XL184 [Suspect]
     Active Substance: CABOZANTINIB
     Dosage: 20 MG, QD
     Route: 048
  3. METFORMIN [Concomitant]
     Active Substance: METFORMIN HYDROCHLORIDE
  4. ATEZOLIZUMAB. [Suspect]
     Active Substance: ATEZOLIZUMAB
     Indication: HEPATOCELLULAR CARCINOMA
     Dosage: 1200 MG, Q3WEEKS
     Route: 042
     Dates: start: 20200701
  5. GLICLAZIDE (II) [Concomitant]
  6. NPH INSULIN [Concomitant]
     Active Substance: INSULIN BEEF
  7. INSULIN [Concomitant]
     Active Substance: INSULIN NOS
  8. LOPERAMIDE [Concomitant]
     Active Substance: LOPERAMIDE
  9. TRANEXAMIC ACID ACCORD [Concomitant]

REACTIONS (1)
  - Drug-induced liver injury [Recovered/Resolved]

NARRATIVE: CASE EVENT DATE: 20200807
